FAERS Safety Report 23409982 (Version 1)
Quarter: 2024Q1

REPORT INFORMATION
  Report Type: Spontaneous
  Country: JP (occurrence: JP)
  Receive Date: 20240117
  Receipt Date: 20240117
  Transmission Date: 20240410
  Serious: Yes (Hospitalization, Other)
  Sender: FDA-Public Use
  Company Number: JP-MSD-2401JPN000810J

PATIENT
  Age: 71 Year
  Sex: Female
  Weight: 53 kg

DRUGS (8)
  1. KEYTRUDA [Suspect]
     Active Substance: PEMBROLIZUMAB
     Indication: Squamous cell carcinoma of lung
     Dosage: 200 MILLIGRAM
     Route: 041
     Dates: start: 20230607, end: 2023
  2. ABRAXANE [Suspect]
     Active Substance: PACLITAXEL
     Indication: Squamous cell carcinoma of lung
     Dosage: 150 MILLIGRAM
     Route: 041
     Dates: start: 20230607, end: 20230906
  3. CARBOPLATIN [Suspect]
     Active Substance: CARBOPLATIN
     Indication: Squamous cell carcinoma of lung
     Dosage: 690 MILLIGRAM
     Route: 041
     Dates: start: 20230607, end: 20230906
  4. CALBLOCK [AZELNIDIPINE] [Concomitant]
     Dosage: UNK
     Route: 048
     Dates: start: 20230706, end: 20231227
  5. ZINC [Concomitant]
     Active Substance: PYRITHIONE ZINC\ZINC\ZINC CHLORIDE
     Dosage: UNK
     Route: 048
     Dates: start: 20231101, end: 20231228
  6. POTASSIUM ASPARTATE [Concomitant]
     Active Substance: POTASSIUM ASPARTATE
     Dosage: UNK
     Route: 048
     Dates: start: 20231101, end: 20231227
  7. OLODATEROL HYDROCHLORIDE\TIOTROPIUM BROMIDE MONOHYDRATE [Concomitant]
     Active Substance: OLODATEROL HYDROCHLORIDE\TIOTROPIUM BROMIDE MONOHYDRATE
     Dosage: UNK
     Dates: start: 20230606, end: 20231228
  8. PREGABALIN [Concomitant]
     Active Substance: PREGABALIN
     Dosage: UNK
     Route: 048
     Dates: start: 20231122, end: 20231227

REACTIONS (1)
  - Pulmonary toxicity [Recovering/Resolving]

NARRATIVE: CASE EVENT DATE: 20231127
